FAERS Safety Report 23154263 (Version 1)
Quarter: 2023Q4

REPORT INFORMATION
  Report Type: Spontaneous
  Country: ES (occurrence: ES)
  Receive Date: 20231107
  Receipt Date: 20231107
  Transmission Date: 20240109
  Serious: Yes (Life-Threatening, Hospitalization)
  Sender: FDA-Public Use
  Company Number: ES-AEMPS-1395124

PATIENT
  Age: 41 Year
  Sex: Female
  Weight: 70 kg

DRUGS (3)
  1. ENALAPRIL [Suspect]
     Active Substance: ENALAPRIL
     Indication: Hypertension
     Dosage: 10 MG/24H
     Route: 065
     Dates: start: 20230421
  2. FENOFIBRATE [Suspect]
     Active Substance: FENOFIBRATE
     Indication: Hypertriglyceridaemia
     Dosage: 160 MG/24H
     Route: 065
     Dates: start: 20230424, end: 20230623
  3. HERBALS [Suspect]
     Active Substance: HERBALS
     Indication: Abdominal pain upper
     Dosage: UNK
     Route: 048
     Dates: start: 20230630, end: 20230706

REACTIONS (2)
  - Hepatic failure [Unknown]
  - Liver transplant [Unknown]

NARRATIVE: CASE EVENT DATE: 20230706
